FAERS Safety Report 4479591-0 (Version None)
Quarter: 2004Q4

REPORT INFORMATION
  Report Type: 
  Country: None (occurrence: None)
  Receive Date: 20041018
  Receipt Date: 20041012
  Transmission Date: 20050328
  Serious: Yes (Hospitalization)
  Sender: FDA-Public Use
  Company Number: 2004-09-0283

PATIENT
  Age: 49 Year
  Sex: Female
  Weight: 69 kg

DRUGS (6)
  1. REBETOL [Suspect]
     Indication: HEPATITIS C
     Dosage: SEE IMAGE
     Dates: start: 20021101, end: 20030412
  2. REBETOL [Suspect]
     Indication: HEPATITIS C
     Dosage: SEE IMAGE
     Dates: start: 20021128, end: 20030412
  3. REBETOL [Suspect]
     Indication: HEPATITIS C
     Dosage: SEE IMAGE
     Dates: start: 20021101
  4. INTRON A [Suspect]
     Indication: HEPATITIS C
     Dosage: SEE IMAGE
     Route: 048
     Dates: start: 20021101, end: 20030409
  5. INTRON A [Suspect]
     Indication: HEPATITIS C
     Dosage: SEE IMAGE
     Route: 048
     Dates: start: 20021128, end: 20030409
  6. INTRON A [Suspect]
     Indication: HEPATITIS C
     Dosage: SEE IMAGE
     Route: 048
     Dates: start: 20021101

REACTIONS (8)
  - ABSCESS [None]
  - DRUG INEFFECTIVE [None]
  - FLUSHING [None]
  - HYPERSENSITIVITY [None]
  - INJECTION SITE REACTION [None]
  - MEDICATION ERROR [None]
  - PANNICULITIS [None]
  - SKIN GRAFT [None]
